FAERS Safety Report 6733312-7 (Version None)
Quarter: 2010Q2

REPORT INFORMATION
  Report Type: 
  Country: None (occurrence: None)
  Receive Date: 20100520
  Receipt Date: 20100508
  Transmission Date: 20101027
  Serious: Yes (Other)
  Sender: FDA-Public Use
  Company Number: CA-PFIZER INC-2010058589

PATIENT
  Age: 91 Year
  Sex: Male

DRUGS (1)
  1. DETROL LA [Suspect]

REACTIONS (1)
  - HEART RATE IRREGULAR [None]
